FAERS Safety Report 19603664 (Version 1)
Quarter: 2021Q3

REPORT INFORMATION
  Report Type: Report from Study
  Country: CN (occurrence: CN)
  Receive Date: 20210723
  Receipt Date: 20210723
  Transmission Date: 20211014
  Serious: Yes (Other)
  Sender: FDA-Public Use
  Company Number: CN-TAKEDA-2021TUS033072

PATIENT
  Age: 52 Year
  Sex: Male
  Weight: 82 kg

DRUGS (8)
  1. IXAZOMIB [Suspect]
     Active Substance: IXAZOMIB
     Indication: PLASMA CELL MYELOMA
     Dosage: 4 MILLIGRAM
     Route: 048
     Dates: start: 20210307, end: 20210326
  2. ASPIRIN. [Concomitant]
     Active Substance: ASPIRIN
     Indication: PROPHYLAXIS
     Dosage: 100 MILLIGRAM, QD
     Route: 048
     Dates: start: 20210309
  3. GLUTATHIONE [Concomitant]
     Active Substance: GLUTATHIONE
     Dosage: 0.4 GRAM, TID
     Route: 048
     Dates: start: 202012
  4. FENTANYL. [Suspect]
     Active Substance: FENTANYL
     Dosage: 4.125 MILLIGRAM
     Route: 061
     Dates: start: 20210303
  5. PREGABALIN. [Concomitant]
     Active Substance: PREGABALIN
     Dosage: 75 MILLIGRAM, BID
     Route: 048
     Dates: start: 20210303
  6. IXAZOMIB [Suspect]
     Active Substance: IXAZOMIB
     Dosage: 4 MILLIGRAM
     Route: 048
     Dates: start: 20210410
  7. MECOBALAMIN [Concomitant]
     Active Substance: METHYLCOBALAMIN
     Dosage: 0.5 MILLIGRAM, TID
     Route: 048
     Dates: start: 20210306
  8. OXYCODONE AND ACETAMINOPHEN [Concomitant]
     Active Substance: ACETAMINOPHEN\OXYCODONE HYDROCHLORIDE
     Dosage: 5 MILLIGRAM, QD
     Route: 048
     Dates: start: 20210303

REACTIONS (10)
  - Neutrophil count decreased [Recovering/Resolving]
  - Decreased appetite [Recovering/Resolving]
  - White blood cell count decreased [Recovered/Resolved]
  - Headache [Recovering/Resolving]
  - Asthenia [Recovering/Resolving]
  - Skin infection [Not Recovered/Not Resolved]
  - Soft tissue infection [Not Recovered/Not Resolved]
  - Dizziness [Recovered/Resolved]
  - Upper respiratory tract infection [Recovering/Resolving]
  - Constipation [Recovering/Resolving]

NARRATIVE: CASE EVENT DATE: 20210312
